FAERS Safety Report 8578073 (Version 5)
Quarter: 2014Q2

REPORT INFORMATION
  Report Type: Spontaneous
  Country: US (occurrence: US)
  Receive Date: 20120524
  Receipt Date: 20140430
  Transmission Date: 20141212
  Serious: Yes (Hospitalization, Other)
  Sender: FDA-Public Use
  Company Number: US-ASTRAZENECA-2012SE22229

PATIENT
  Age: 79 Year
  Sex: Male
  Weight: 108 kg

DRUGS (7)
  1. NEXIUM [Suspect]
     Indication: GASTROOESOPHAGEAL REFLUX DISEASE
     Route: 048
     Dates: start: 2001, end: 20140419
  2. NEXIUM [Suspect]
     Indication: OESOPHAGEAL HAEMORRHAGE
     Route: 048
     Dates: start: 2001, end: 20140419
  3. PRILOSEC [Suspect]
     Indication: GASTROOESOPHAGEAL REFLUX DISEASE
     Route: 048
     Dates: start: 1997, end: 2001
  4. PRILOSEC [Suspect]
     Indication: BLOOD DISORDER
     Route: 048
     Dates: start: 1997, end: 2001
  5. CRESTOR [Suspect]
     Indication: BLOOD CHOLESTEROL
     Route: 048
     Dates: start: 2010
  6. DOXAZOSIN [Concomitant]
     Indication: DYSURIA
     Route: 048
  7. LORATADINE OTC [Concomitant]
     Indication: HYPERSENSITIVITY
     Route: 048

REACTIONS (15)
  - Oesophageal haemorrhage [Unknown]
  - Ulcer haemorrhage [Unknown]
  - Lower gastrointestinal haemorrhage [Unknown]
  - Lower limb fracture [Unknown]
  - Musculoskeletal stiffness [Unknown]
  - Muscular weakness [Unknown]
  - Pain [Unknown]
  - Myalgia [Unknown]
  - Muscle disorder [Unknown]
  - Mobility decreased [Unknown]
  - Pain in extremity [Unknown]
  - Hypoacusis [Unknown]
  - Muscle spasms [Unknown]
  - Drug dose omission [Unknown]
  - Off label use [Unknown]
